FAERS Safety Report 23039586 (Version 5)
Quarter: 2023Q4

REPORT INFORMATION
  Report Type: Report from Study
  Country: US (occurrence: US)
  Receive Date: 20231006
  Receipt Date: 20231114
  Transmission Date: 20240110
  Serious: Yes (Hospitalization)
  Sender: FDA-Public Use
  Company Number: US-002147023-NVSC2023US212361

PATIENT
  Age: 38 Year
  Sex: Female
  Weight: 124.6 kg

DRUGS (25)
  1. OFATUMUMAB [Suspect]
     Active Substance: OFATUMUMAB
     Indication: Relapsing multiple sclerosis
     Dosage: 20 MG, Q4W
     Route: 058
     Dates: start: 20190614
  2. KESIMPTA [Suspect]
     Active Substance: OFATUMUMAB
     Indication: Relapsing multiple sclerosis
     Dosage: 1 DOSAGE FORM, QW
     Route: 058
     Dates: start: 20190621
  3. IBUPROFEN [Concomitant]
     Active Substance: IBUPROFEN
     Indication: Pain
     Dosage: UNK
     Route: 065
     Dates: start: 201612
  4. IBUPROFEN [Concomitant]
     Active Substance: IBUPROFEN
     Indication: Headache
     Dosage: UNK
     Route: 065
     Dates: start: 201808
  5. IBUPROFEN [Concomitant]
     Active Substance: IBUPROFEN
     Indication: Pain
  6. BENADRYL [Concomitant]
     Active Substance: DIPHENHYDRAMINE HYDROCHLORIDE
     Indication: Seasonal allergy
     Dosage: UNK
     Route: 065
     Dates: start: 201905
  7. ACYCLOVIR [Concomitant]
     Active Substance: ACYCLOVIR
     Indication: Prophylaxis
     Dosage: UNK
     Route: 065
     Dates: start: 20191127
  8. ZOVIRAX [Concomitant]
     Active Substance: ACYCLOVIR
     Indication: Prophylaxis
     Dosage: 200 MG, BID
     Route: 048
     Dates: start: 20191127, end: 2023
  9. METHYLPHENIDATE [Concomitant]
     Active Substance: METHYLPHENIDATE
     Indication: Fatigue
     Dosage: UNK
     Route: 065
     Dates: start: 20191224
  10. CALCIUM CARBONATE [Concomitant]
     Active Substance: CALCIUM CARBONATE
     Indication: Dyspepsia
     Dosage: UNK
     Route: 065
     Dates: start: 202009
  11. VITAMIN B12 [Concomitant]
     Active Substance: CYANOCOBALAMIN
     Indication: Fatigue
     Dosage: UNK
     Route: 065
     Dates: start: 20210120
  12. CANNABIDIOL [Concomitant]
     Active Substance: CANNABIDIOL
     Indication: Anxiety
     Dosage: UNK
     Route: 065
     Dates: start: 20210131
  13. AUBRA [Concomitant]
     Active Substance: ETHINYL ESTRADIOL\LEVONORGESTREL
     Indication: Contraception
     Dosage: 0.1 TO 20 MG MCG
     Route: 065
     Dates: start: 20210215
  14. MAGNESIUM OXIDE [Concomitant]
     Active Substance: MAGNESIUM OXIDE
     Indication: Pain
     Dosage: UNK
     Route: 065
     Dates: start: 20210410
  15. ALLEGRA [Concomitant]
     Active Substance: FEXOFENADINE HYDROCHLORIDE
     Indication: Seasonal allergy
     Dosage: UNK
     Route: 065
     Dates: start: 20210627
  16. FLONASE [Concomitant]
     Active Substance: FLUTICASONE PROPIONATE
     Indication: Seasonal allergy
     Dosage: UNK
     Route: 065
     Dates: start: 20210627
  17. VITAMIN D3 [Concomitant]
     Active Substance: CHOLECALCIFEROL
     Indication: Vitamin D deficiency
     Dosage: UNK
     Route: 065
     Dates: start: 20211116
  18. TIZANIDINE [Concomitant]
     Active Substance: TIZANIDINE
     Indication: Muscle spasticity
     Dosage: UNK
     Route: 065
     Dates: start: 20220316
  19. TOPAMAX [Concomitant]
     Active Substance: TOPIRAMATE
     Indication: Headache
     Dosage: 25 MG, QD
     Route: 048
     Dates: start: 20220316, end: 2023
  20. TOPIRAMATE [Concomitant]
     Active Substance: TOPIRAMATE
     Indication: Tension headache
     Dosage: UNK
     Route: 065
     Dates: start: 20220316
  21. HERBALS\TURMERIC [Concomitant]
     Active Substance: HERBALS\TURMERIC
     Indication: General physical condition
     Dosage: UNK
     Route: 065
     Dates: start: 20220914
  22. VENLAFAXINE [Concomitant]
     Active Substance: VENLAFAXINE HYDROCHLORIDE
     Indication: Depression
     Dosage: UNK
     Route: 065
     Dates: start: 20220914
  23. ZANAFLEX [Concomitant]
     Active Substance: TIZANIDINE HYDROCHLORIDE
     Indication: Muscle spasticity
     Dosage: 4 MG, QD
     Route: 048
     Dates: start: 20220316, end: 2023
  24. VENLAFAXINE HYDROCHLORIDE [Concomitant]
     Active Substance: VENLAFAXINE HYDROCHLORIDE
     Indication: Depression
     Dosage: 75 MG, QD
     Route: 048
     Dates: start: 20220914, end: 2023
  25. AVIANE [Concomitant]
     Active Substance: ETHINYL ESTRADIOL\LEVONORGESTREL
     Indication: Contraception
     Dosage: UNK QD
     Route: 048
     Dates: start: 20210215, end: 2023

REACTIONS (1)
  - Cellulitis [Recovered/Resolved]

NARRATIVE: CASE EVENT DATE: 20230826
